FAERS Safety Report 9013931 (Version 1)
Quarter: 2012Q4

REPORT INFORMATION
  Report Type: Spontaneous
  Country: US (occurrence: None)
  Receive Date: 20121231
  Receipt Date: 20121231
  Transmission Date: 20130627
  Serious: Yes (Other)
  Sender: FDA-Public Use
  Company Number: KAD201212-000536

PATIENT

DRUGS (2)
  1. TOPOTECAN [Suspect]
  2. BUSULFAN [Suspect]

REACTIONS (8)
  - Toxicity to various agents [None]
  - Drug effect decreased [None]
  - Mucosal inflammation [None]
  - Diarrhoea [None]
  - Transaminases increased [None]
  - Blood bilirubin increased [None]
  - Pulmonary toxicity [None]
  - Colitis [None]
